FAERS Safety Report 9255824 (Version 2)
Quarter: 2013Q2

REPORT INFORMATION
  Report Type: Spontaneous
  Country: IT (occurrence: IT)
  Receive Date: 20130425
  Receipt Date: 20130510
  Transmission Date: 20140414
  Serious: Yes (Other)
  Sender: FDA-Public Use
  Company Number: IT-ELI_LILLY_AND_COMPANY-IT201304004738

PATIENT
  Age: 88 Year
  Sex: Male

DRUGS (1)
  1. FORSTEO [Suspect]
     Dosage: 20 UG, QD
     Route: 058
     Dates: start: 20120115, end: 20130409

REACTIONS (2)
  - Myocardial infarction [Unknown]
  - Pyrexia [Unknown]
